FAERS Safety Report 6204507-6 (Version None)
Quarter: 2009Q2

REPORT INFORMATION
  Report Type: 
  Country: None (occurrence: None)
  Receive Date: 20090527
  Receipt Date: 20090514
  Transmission Date: 20091009
  Serious: Yes (Other)
  Sender: FDA-Public Use
  Company Number: GB-PFIZER INC-2009212943

PATIENT
  Age: 59 Year

DRUGS (6)
  1. CARBAMAZEPINE [Suspect]
     Indication: MENTAL DISORDER
     Dosage: 300 MG, 2X/DAY
     Route: 048
  2. CISPLATIN [Suspect]
     Indication: GASTRIC CANCER
     Dosage: 120 MG, ONCE EVERY 3 WEEKS
     Route: 042
     Dates: start: 20090218
  3. EPIRUBICIN HCL [Suspect]
     Indication: GASTRIC CANCER
     Dosage: 100 MG, ONCE EVERY 3 WEEKS
     Route: 042
     Dates: start: 20090218
  4. OLANZAPINE [Suspect]
     Indication: MENTAL DISORDER
     Dosage: 10 MG, 1X/DAY
     Route: 048
  5. PERPHENAZINE [Suspect]
     Indication: MENTAL DISORDER
     Dosage: 4 MG, 2X/DAY
     Route: 048
  6. XELODA [Suspect]
     Indication: GASTRIC CANCER
     Dosage: 1300 MG, 2X/DAY
     Route: 048
     Dates: start: 20090218, end: 20090311

REACTIONS (2)
  - DRUG INTERACTION [None]
  - HALLUCINATION, VISUAL [None]
